FAERS Safety Report 9782172 (Version 1)
Quarter: 2013Q4

REPORT INFORMATION
  Report Type: Spontaneous
  Country: FR (occurrence: FR)
  Receive Date: 20131226
  Receipt Date: 20131226
  Transmission Date: 20140711
  Serious: Yes (Death)
  Sender: FDA-Public Use
  Company Number: FR-ROCHE-1325217

PATIENT
  Age: 80 Year
  Sex: Male

DRUGS (11)
  1. MABTHERA [Suspect]
     Indication: MANTLE CELL LYMPHOMA
     Route: 042
     Dates: start: 20131025, end: 20131025
  2. LEVACT (FRANCE) [Suspect]
     Indication: MANTLE CELL LYMPHOMA
     Route: 042
     Dates: start: 20131025, end: 20131025
  3. FASTURTEC [Suspect]
     Indication: TUMOUR LYSIS SYNDROME
     Route: 042
     Dates: start: 20131024, end: 20131024
  4. SOLU-MEDROL [Suspect]
     Indication: PRODUCT USED FOR UNKNOWN INDICATION
     Route: 042
     Dates: start: 20131025, end: 20131025
  5. ZOPHREN [Suspect]
     Indication: VOMITING
     Route: 042
     Dates: start: 20131025, end: 20131025
  6. LASILIX [Concomitant]
     Route: 048
  7. XYZALL [Concomitant]
     Route: 048
  8. CALCIPARINE [Concomitant]
     Route: 058
  9. FLECAINE [Concomitant]
     Route: 048
  10. DISCOTRINE [Concomitant]
     Route: 062
  11. XYZALL [Concomitant]
     Route: 065

REACTIONS (1)
  - Death [Fatal]
